FAERS Safety Report 10169100 (Version 1)
Quarter: 2014Q2

REPORT INFORMATION
  Report Type: Spontaneous
  Country: US (occurrence: None)
  Receive Date: 20140512
  Receipt Date: 20140512
  Transmission Date: 20141212
  Serious: Yes (Hospitalization)
  Sender: FDA-Public Use
  Company Number: None

PATIENT
  Age: 67 Year
  Sex: Male
  Weight: 97.8 kg

DRUGS (1)
  1. RITUXIMAB [Suspect]
     Dosage: TOTAL DOSE ADMINISTERED 851 MG
     Dates: start: 20140505

REACTIONS (3)
  - Pallor [None]
  - Hyperhidrosis [None]
  - Circulatory collapse [None]
